FAERS Safety Report 5184922-2 (Version None)
Quarter: 2006Q4

REPORT INFORMATION
  Report Type: 
  Country: None (occurrence: None)
  Receive Date: 20061220
  Receipt Date: 20060510
  Transmission Date: 20070319
  Serious: No
  Sender: FDA-Public Use
  Company Number: US-GLAXOSMITHKLINE-A0604991A

PATIENT
  Age: 42 Year
  Sex: Female

DRUGS (2)
  1. EQUATE NTS 7MG [Suspect]
     Dates: start: 20060306, end: 20060421
  2. EQUATE NTS 14MG [Suspect]
     Dates: start: 20060306, end: 20060421

REACTIONS (4)
  - APPLICATION SITE RASH [None]
  - EXPIRED DRUG ADMINISTERED [None]
  - HEADACHE [None]
  - RASH GENERALISED [None]
